FAERS Safety Report 7906135-0 (Version None)
Quarter: 2011Q4

REPORT INFORMATION
  Report Type: 
  Country: None (occurrence: None)
  Receive Date: 20111110
  Receipt Date: 20111013
  Transmission Date: 20120403
  Serious: Yes (Life-Threatening)
  Sender: FDA-Public Use
  Company Number: JP-BAYER-2011-047325

PATIENT
  Age: 76 Year
  Sex: Female
  Weight: 50 kg

DRUGS (10)
  1. EPINASTINE HYDROCHLORIDE [Concomitant]
     Indication: HYPERSENSITIVITY
     Dosage: 1 DF, QD
     Route: 048
     Dates: start: 20110427, end: 20110506
  2. NEO-MINOPHAGEN C [Concomitant]
     Route: 065
  3. GLYCYRON [GLYCYRRHIZIC ACID] [Concomitant]
     Indication: HEPATIC FUNCTION ABNORMAL
     Dosage: 2 DF, TID
     Route: 048
     Dates: start: 20110427
  4. URSO 250 [Concomitant]
     Dosage: DAILY DOSE 300 MG
     Route: 048
     Dates: end: 20110329
  5. ASPARTATE POTASSIUM [Concomitant]
     Indication: MINERAL SUPPLEMENTATION
     Dosage: 300 MG, TID
     Route: 048
     Dates: start: 20071105
  6. NICARDIPINE HCL [Concomitant]
     Indication: HYPERTENSION
     Dosage: 20 MG, BID
     Route: 048
     Dates: start: 20070613, end: 20110506
  7. HIRUDOID [Concomitant]
     Route: 061
  8. NEXAVAR [Suspect]
     Indication: HEPATIC NEOPLASM MALIGNANT
     Dosage: 200 MG, BID
     Route: 048
     Dates: start: 20110427, end: 20110506
  9. PASTARON [Concomitant]
     Dosage: UNK
     Route: 061
     Dates: start: 20110427, end: 20110506
  10. ANTEBATE [Concomitant]
     Dosage: UNK
     Route: 061
     Dates: start: 20110427, end: 20110506

REACTIONS (1)
  - COMA HEPATIC [None]
